FAERS Safety Report 12791845 (Version 1)
Quarter: 2016Q3

REPORT INFORMATION
  Report Type: Spontaneous
  Country: US (occurrence: US)
  Receive Date: 20160929
  Receipt Date: 20160929
  Transmission Date: 20161109
  Serious: No
  Sender: FDA-Public Use
  Company Number: US-G+W LABS-GW2016US000115

PATIENT

DRUGS (1)
  1. CLINDAMYCIN PHOSPHATE. [Suspect]
     Active Substance: CLINDAMYCIN PHOSPHATE
     Indication: ARTHROPOD BITE
     Dosage: 1 %, BID
     Route: 061
     Dates: start: 2016

REACTIONS (3)
  - Accidental exposure to product [Recovered/Resolved]
  - Off label use [Recovered/Resolved]
  - Eye pain [Recovering/Resolving]

NARRATIVE: CASE EVENT DATE: 2016
